FAERS Safety Report 7032464 (Version 5)
Quarter: 2013Q3

REPORT INFORMATION
  Report Type: Report from Study
  Country: US (occurrence: US)
  Receive Date: 20090624
  Receipt Date: 20130830
  Transmission Date: 20140515
  Serious: Yes (Hospitalization, Other)
  Sender: FDA-Public Use
  Company Number: US-ABBOTT-09P-163-0580244-00

PATIENT
  Age: 63 Year
  Sex: Female
  Weight: 44.04 kg

DRUGS (18)
  1. HUMIRA 40 MG/0.8 ML PEN [Suspect]
     Indication: RHEUMATOID ARTHRITIS
     Route: 058
  2. HUMIRA 40 MG/0.8 ML PEN [Suspect]
     Dosage: PRE-FILLED SYRINGE
     Route: 058
     Dates: start: 20030603
  3. HUMIRA 40 MG/0.8 ML PEN [Suspect]
     Dates: start: 2003, end: 20130808
  4. HUMIRA 40 MG/0.8 ML PEN [Suspect]
     Dates: start: 20130815, end: 20130815
  5. CELEBREX [Suspect]
     Indication: PRODUCT USED FOR UNKNOWN INDICATION
  6. CLONAZEPAM [Suspect]
     Indication: NERVOUSNESS
     Dates: start: 1983, end: 2013
  7. CLONAZEPAM [Suspect]
     Dates: start: 2013, end: 20130625
  8. CLONAZEPAM [Suspect]
     Dates: start: 201308
  9. METHOTREXATE [Concomitant]
     Indication: PRODUCT USED FOR UNKNOWN INDICATION
  10. NORTRIPTYLINE [Concomitant]
     Indication: PRODUCT USED FOR UNKNOWN INDICATION
  11. CELEXA [Concomitant]
     Indication: PRODUCT USED FOR UNKNOWN INDICATION
  12. WELLBUTRIN [Concomitant]
     Indication: PRODUCT USED FOR UNKNOWN INDICATION
  13. ADDERALL [Concomitant]
     Indication: PRODUCT USED FOR UNKNOWN INDICATION
  14. CLONAZEPAM [Concomitant]
     Indication: ANXIETY
     Dosage: 3-4 TIMES DAILY AS NEEDED, OR MORE
  15. OMEPRAZOLE [Concomitant]
     Indication: GASTRIC DISORDER
  16. OMEPRAZOLE [Concomitant]
     Indication: PROPHYLAXIS
  17. ZOLPIDEM TARTRATE [Concomitant]
     Indication: INSOMNIA
  18. METHADONE HCL [Concomitant]
     Indication: BREAKTHROUGH PAIN

REACTIONS (29)
  - Blood pressure decreased [Recovered/Resolved]
  - Rectal haemorrhage [Recovered/Resolved]
  - Sinus congestion [Recovered/Resolved]
  - Respiratory tract congestion [Recovered/Resolved]
  - Urinary tract infection [Recovered/Resolved]
  - Sepsis [Recovered/Resolved]
  - Pyrexia [Recovered/Resolved]
  - Upper respiratory tract infection [Recovered/Resolved]
  - Cough [Recovered/Resolved]
  - Pathological fracture [Not Recovered/Not Resolved]
  - Cataract [Recovered/Resolved]
  - Joint dislocation [Recovered/Resolved]
  - Panic attack [Recovered/Resolved]
  - Incorrect dose administered [Not Recovered/Not Resolved]
  - Vomiting [Recovered/Resolved]
  - Convulsion [Recovered/Resolved]
  - Asthenia [Not Recovered/Not Resolved]
  - Drug withdrawal syndrome [Recovered/Resolved]
  - Wrong technique in drug usage process [Recovered/Resolved]
  - Incorrect dose administered [Recovered/Resolved]
  - Contusion [Recovering/Resolving]
  - Drug withdrawal syndrome [Recovered/Resolved]
  - Delirium [Recovered/Resolved]
  - Confusional state [Not Recovered/Not Resolved]
  - Wrong technique in drug usage process [Recovered/Resolved]
  - Incorrect drug administration duration [Recovered/Resolved]
  - Pneumonia [Recovered/Resolved]
  - Insomnia [Recovered/Resolved]
  - Overdose [Recovered/Resolved]
